FAERS Safety Report 6658842-8 (Version None)
Quarter: 2010Q1

REPORT INFORMATION
  Report Type: 
  Country: None (occurrence: None)
  Receive Date: 20100326
  Receipt Date: 20100317
  Transmission Date: 20100710
  Serious: Yes (Hospitalization)
  Sender: FDA-Public Use
  Company Number: 522236

PATIENT
  Age: 21 Month
  Sex: Male

DRUGS (16)
  1. CYTARABINE [Suspect]
     Indication: B PRECURSOR TYPE ACUTE LEUKAEMIA
     Dosage: INTRATHECAL
     Route: 037
  2. CYTARABINE [Suspect]
     Indication: B PRECURSOR TYPE ACUTE LEUKAEMIA
     Dosage: INTRATHECAL
     Route: 037
  3. METHOTREXATE [Suspect]
     Indication: B PRECURSOR TYPE ACUTE LEUKAEMIA
     Dosage: INTRATRACHEAL
     Route: 039
  4. METHOTREXATE [Suspect]
     Indication: B PRECURSOR TYPE ACUTE LEUKAEMIA
     Dosage: ORAL
     Route: 048
  5. VINCRISTINE SULFATE [Suspect]
     Indication: B PRECURSOR TYPE ACUTE LEUKAEMIA
     Dosage: INTRAVENOUS
     Route: 042
  6. VINCRISTINE [Suspect]
     Indication: B PRECURSOR TYPE ACUTE LEUKAEMIA
     Dosage: INTRAVENOUS
     Route: 042
  7. METHOTREXATE [Suspect]
     Indication: B PRECURSOR TYPE ACUTE LEUKAEMIA
     Dosage: ORAL
     Route: 048
  8. DOXORUBICIN HCL [Suspect]
     Indication: B PRECURSOR TYPE ACUTE LEUKAEMIA
     Dosage: INTRAVENOUS
     Route: 042
  9. MERCAPTOPURINE [Suspect]
     Indication: B PRECURSOR TYPE ACUTE LEUKAEMIA
     Dosage: ORAL
     Route: 048
  10. PEGASPARGASE [Suspect]
     Indication: B PRECURSOR TYPE ACUTE LEUKAEMIA
     Dosage: INTRAMUSCULAR
     Route: 030
  11. THIOGUANINE [Suspect]
     Indication: B PRECURSOR TYPE ACUTE LEUKAEMIA
     Dosage: ORAL
     Route: 048
  12. DEXAMETHASONE [Suspect]
     Indication: B PRECURSOR TYPE ACUTE LEUKAEMIA
     Dosage: 2 DAY, ORAL
     Route: 048
  13. ANTIBIOTICS (PSEUDOMONAL BACTEREMIA) (PESUDOMONAL BACTERAEMIA) [Concomitant]
  14. VORICONAZOLE [Concomitant]
  15. TERBINAFINE [Concomitant]
  16. GRANULOCYTE COLONY STIMULATING FACTOR [Concomitant]

REACTIONS (13)
  - ACQUIRED TRACHEO-OESOPHAGEAL FISTULA [None]
  - ADENOVIRUS INFECTION [None]
  - BRONCHOALVEOLAR LAVAGE ABNORMAL [None]
  - CHEST X-RAY ABNORMAL [None]
  - COUGH [None]
  - DEVICE RELATED INFECTION [None]
  - DISEASE RECURRENCE [None]
  - FUNGAL SKIN INFECTION [None]
  - PSEUDOMONAL BACTERAEMIA [None]
  - STREPTOCOCCAL INFECTION [None]
  - SURGICAL PROCEDURE REPEATED [None]
  - TACHYPNOEA [None]
  - VOCAL CORD PARALYSIS [None]
